FAERS Safety Report 13389959 (Version 1)
Quarter: 2017Q1

REPORT INFORMATION
  Report Type: Spontaneous
  Country: IT (occurrence: IT)
  Receive Date: 20170331
  Receipt Date: 20170331
  Transmission Date: 20170429
  Serious: Yes (Other)
  Sender: FDA-Public Use
  Company Number: IT-HORIZON-PRE-0127-2017

PATIENT
  Age: 70 Year
  Sex: Female

DRUGS (3)
  1. KETOPROFEN. [Suspect]
     Active Substance: KETOPROFEN
     Indication: BACK PAIN
     Dosage: 240 MG DAILY
     Route: 048
     Dates: start: 20161101, end: 20170131
  2. ENOXAPARIN [Suspect]
     Active Substance: ENOXAPARIN
     Indication: THROMBOPHLEBITIS SUPERFICIAL
     Dosage: 0.6 MG DAILY
     Route: 058
     Dates: start: 20170126, end: 20170204
  3. PREDNISONE. [Suspect]
     Active Substance: PREDNISONE
     Indication: BACK PAIN
     Route: 048
     Dates: start: 20161101, end: 20170131

REACTIONS (1)
  - Barrett^s oesophagus [Recovering/Resolving]

NARRATIVE: CASE EVENT DATE: 20170204
